FAERS Safety Report 25640393 (Version 1)
Quarter: 2025Q3

REPORT INFORMATION
  Report Type: Spontaneous
  Country: CA (occurrence: CA)
  Receive Date: 20250804
  Receipt Date: 20250804
  Transmission Date: 20251020
  Serious: Yes (Other)
  Sender: SANDOZ
  Company Number: CA-SANDOZ-SDZ2025CA055263

PATIENT
  Age: 44 Year
  Sex: Male

DRUGS (1)
  1. ETANERCEPT [Suspect]
     Active Substance: ETANERCEPT
     Indication: Ankylosing spondylitis
     Dosage: 50 MG, QW(1 EVERY 1 WEEKS)
     Route: 058

REACTIONS (2)
  - Immunosuppression [Recovering/Resolving]
  - Pneumonia [Recovering/Resolving]
